FAERS Safety Report 13459505 (Version 1)
Quarter: 2017Q2

REPORT INFORMATION
  Report Type: Report from Study
  Country: GB (occurrence: GB)
  Receive Date: 20170419
  Receipt Date: 20170419
  Transmission Date: 20170830
  Serious: Yes (Other)
  Sender: FDA-Public Use
  Company Number: GB-OTSUKA-2017_008365

PATIENT
  Age: 64 Year
  Sex: Male

DRUGS (4)
  1. FLUDARABINE [Suspect]
     Active Substance: FLUDARABINE PHOSPHATE
     Indication: CHRONIC MYELOMONOCYTIC LEUKAEMIA
     Dosage: UNK
     Route: 065
  2. BUSULFAN. [Suspect]
     Active Substance: BUSULFAN
     Dosage: 1.6 MG/KG, UNK ON DAY -3
     Route: 042
  3. ATG [Suspect]
     Active Substance: LAPINE T-LYMPHOCYTE IMMUNE GLOBULIN
     Indication: CHRONIC MYELOMONOCYTIC LEUKAEMIA
     Dosage: UNK
     Route: 065
  4. BUSULFAN. [Suspect]
     Active Substance: BUSULFAN
     Indication: CHRONIC MYELOMONOCYTIC LEUKAEMIA
     Dosage: 3.2 MG/KG, OVER 3 HOURS ON DAYS-5 TO -4
     Route: 042

REACTIONS (5)
  - Renal failure [Unknown]
  - Hepatic failure [Unknown]
  - Acute kidney injury [Unknown]
  - Respiratory failure [Unknown]
  - Venoocclusive liver disease [Recovered/Resolved]
